FAERS Safety Report 17320575 (Version 1)
Quarter: 2020Q1

REPORT INFORMATION
  Report Type: Spontaneous
  Country: US (occurrence: US)
  Receive Date: 20200126
  Receipt Date: 20200126
  Transmission Date: 20200409
  Serious: Yes (Disabling)
  Sender: FDA-Public Use
  Company Number: US-ACORDA-ACO_157436_2019

PATIENT
  Sex: Male
  Weight: 68.93 kg

DRUGS (6)
  1. TYSABRI [Concomitant]
     Active Substance: NATALIZUMAB
     Indication: MULTIPLE SCLEROSIS
     Dosage: UNK
     Route: 065
  2. AMPYRA [Suspect]
     Active Substance: DALFAMPRIDINE
     Indication: GAIT DISTURBANCE
     Dosage: 10 MILLIGRAM, Q 12 HRS
     Route: 048
  3. DALFAMPRIDINE. [Suspect]
     Active Substance: DALFAMPRIDINE
     Indication: MULTIPLE SCLEROSIS
     Dosage: 10 MILLIGRAM, QD
     Route: 048
     Dates: start: 201902
  4. AMPYRA [Suspect]
     Active Substance: DALFAMPRIDINE
     Indication: MULTIPLE SCLEROSIS
  5. DALFAMPRIDINE. [Suspect]
     Active Substance: DALFAMPRIDINE
     Dosage: 10 UNK
     Route: 065
     Dates: start: 201902
  6. DALFAMPRIDINE. [Suspect]
     Active Substance: DALFAMPRIDINE
     Indication: GAIT DISTURBANCE
     Dosage: 10 MILLIGRAM, BID
     Route: 048
     Dates: start: 201901, end: 201902

REACTIONS (5)
  - Inappropriate schedule of product administration [Recovered/Resolved]
  - Fine motor skill dysfunction [Recovering/Resolving]
  - Multiple sclerosis relapse [Recovering/Resolving]
  - Multiple sclerosis [Recovering/Resolving]
  - Muscular weakness [Recovering/Resolving]

NARRATIVE: CASE EVENT DATE: 2017
